FAERS Safety Report 16997737 (Version 3)
Quarter: 2019Q4

REPORT INFORMATION
  Report Type: Spontaneous
  Country: CN (occurrence: CN)
  Receive Date: 20191106
  Receipt Date: 20191120
  Transmission Date: 20200122
  Serious: Yes (Hospitalization, Other)
  Sender: FDA-Public Use
  Company Number: CN-B.I. PHARMACEUTICALS,INC./RIDGEFIELD-2019-BI-111114

PATIENT
  Age: 66 Year
  Sex: Female

DRUGS (2)
  1. DAN SHEN CHUAN XIONG QIN ZHU SHE YE [Concomitant]
     Indication: CEREBROVASCULAR DISORDER
     Route: 065
     Dates: start: 20191024, end: 20191030
  2. PRADAXA [Suspect]
     Active Substance: DABIGATRAN ETEXILATE MESYLATE
     Indication: ATRIAL FIBRILLATION
     Route: 065
     Dates: start: 20181030, end: 20191030

REACTIONS (6)
  - Haemoglobin decreased [Unknown]
  - Transient ischaemic attack [Recovering/Resolving]
  - Cerebral haemorrhage [Recovering/Resolving]
  - Shock haemorrhagic [Recovering/Resolving]
  - Gastrointestinal haemorrhage [Recovering/Resolving]
  - Gastric ulcer [Recovering/Resolving]

NARRATIVE: CASE EVENT DATE: 20191028
